FAERS Safety Report 24376382 (Version 1)
Quarter: 2024Q3

REPORT INFORMATION
  Report Type: Spontaneous
  Country: CN (occurrence: CN)
  Receive Date: 20240930
  Receipt Date: 20240930
  Transmission Date: 20241016
  Serious: Yes (Other)
  Sender: ROCHE
  Company Number: CN-ROCHE-10000088484

PATIENT
  Sex: Male

DRUGS (1)
  1. FARICIMAB [Suspect]
     Active Substance: FARICIMAB
     Indication: Product used for unknown indication
     Dosage: RECENT DOSE ON 19-SEP-2024
     Route: 065
     Dates: start: 20240517

REACTIONS (2)
  - Blindness [Unknown]
  - Eye infection [Unknown]

NARRATIVE: CASE EVENT DATE: 20240922
